FAERS Safety Report 7541615-1 (Version None)
Quarter: 2011Q2

REPORT INFORMATION
  Report Type: 
  Country: None (occurrence: None)
  Receive Date: 20110613
  Receipt Date: 20110531
  Transmission Date: 20111010
  Serious: Yes (Death, Hospitalization, Other)
  Sender: FDA-Public Use
  Company Number: US-ELI_LILLY_AND_COMPANY-US201104000601

PATIENT
  Sex: Female
  Weight: 40.8 kg

DRUGS (34)
  1. SINGULAIR [Concomitant]
     Dosage: 10 MG, QD
     Route: 048
  2. PLAVIX [Concomitant]
     Dosage: 75 MG, QD
     Route: 048
  3. ASPIRIN EXTRA [Concomitant]
     Dosage: UNK, PRN
  4. NYSTATIN [Concomitant]
     Dosage: 1000 DF, UNK
  5. FORTEO [Suspect]
     Dosage: 20 UG, QD
     Route: 058
     Dates: end: 20110404
  6. PROTONIX [Concomitant]
     Dosage: 40 MG, QD
  7. COLACE [Concomitant]
     Dosage: 100 MG, BID
     Route: 048
  8. XYZAL [Concomitant]
     Dosage: 2.5 MG, PRN
     Route: 048
  9. FORTEO [Suspect]
     Dosage: 20 UG, QD
     Route: 058
     Dates: end: 20110324
  10. NITRO-DUR [Concomitant]
     Dosage: 0.1 MG, QD
  11. MIACALCIN [Concomitant]
  12. K-DUR [Concomitant]
  13. BACTRIM DS [Concomitant]
  14. LISINOPRIL [Concomitant]
  15. ANTIVERT [Concomitant]
     Dosage: 12.5 MG, PRN
  16. PACERONE [Concomitant]
     Dosage: 100 MG, QD
     Route: 048
  17. ANTIHYPERTENSIVES [Concomitant]
  18. AMIODARONE HCL [Concomitant]
  19. PHENERGAN HCL [Concomitant]
     Dosage: 25 MG, PRN
     Route: 048
  20. XOPENEX [Concomitant]
  21. KLOR-CON [Concomitant]
     Dosage: 10 MEQ, QD
     Route: 048
  22. TOPROL-XL                          /00376903/ [Concomitant]
     Dosage: 12.5 MG, QD
     Route: 048
  23. ARTIFICIAL TEARS [Concomitant]
  24. TYLENOL                                 /SCH/ [Concomitant]
     Dosage: 500 MG, PRN
  25. CALTRATE                           /00108001/ [Concomitant]
  26. MECLIZINE [Concomitant]
  27. FORTEO [Suspect]
     Indication: OSTEOPOROSIS
     Dosage: 20 UG, QD
     Route: 058
     Dates: start: 20101001, end: 20101001
  28. FORTEO [Suspect]
     Dosage: 20 UG, QD
     Route: 058
  29. SYNTHROID [Concomitant]
     Dosage: 125 UG, QD
     Route: 048
  30. ASPIRIN [Concomitant]
     Dosage: 325 MG, QD
  31. MIRALAX [Concomitant]
     Dosage: UNK, QD
     Route: 048
  32. LASIX [Concomitant]
     Dosage: 20 MG, QD
  33. VITAMIN D [Concomitant]
     Dosage: UNK, MONTHLY (1/M)
  34. ADVAIR DISKUS 100/50 [Concomitant]
     Dosage: 250 UG, BID
     Route: 055

REACTIONS (5)
  - DEATH [None]
  - CARDIAC FAILURE CONGESTIVE [None]
  - CHEST PAIN [None]
  - ACUTE CORONARY SYNDROME [None]
  - RENAL FAILURE ACUTE [None]
